FAERS Safety Report 9051070 (Version 1)
Quarter: 2013Q1

REPORT INFORMATION
  Report Type: Spontaneous
  Country: US (occurrence: US)
  Receive Date: 20130206
  Receipt Date: 20130206
  Transmission Date: 20140127
  Serious: No
  Sender: FDA-Public Use
  Company Number: US-009507513-1302USA001925

PATIENT
  Age: 64 None
  Sex: Male

DRUGS (2)
  1. SINGULAIR [Suspect]
     Indication: HYPERSENSITIVITY
     Dosage: 10 MG, HS
     Route: 048
     Dates: start: 2012
  2. HYDROCHLOROTHIAZIDE (+) LISINOPRIL [Concomitant]
     Dosage: 20/25 MG

REACTIONS (2)
  - Choking [Not Recovered/Not Resolved]
  - Drug ineffective [Unknown]
